FAERS Safety Report 8123475-3 (Version None)
Quarter: 2012Q1

REPORT INFORMATION
  Report Type: 
  Country: None (occurrence: None)
  Receive Date: 20120208
  Receipt Date: 20120125
  Transmission Date: 20120608
  Serious: Yes (Other)
  Sender: FDA-Public Use
  Company Number: PHHY2011DE109771

PATIENT
  Sex: Female

DRUGS (5)
  1. CLOZAPINE [Suspect]
     Indication: SCHIZOPHRENIA, PARANOID TYPE
  2. MELPERONE [Concomitant]
     Indication: PSYCHOTIC DISORDER
     Dosage: UNK UKN, UNK
  3. CLOZAPINE [Suspect]
     Indication: PSYCHOTIC DISORDER
     Dosage: 500 MG QD
     Route: 048
  4. VALPROATE SODIUM [Concomitant]
     Indication: PSYCHOTIC DISORDER
     Dosage: UNK UKN, UNK
  5. HALDOL [Concomitant]
     Indication: PSYCHOTIC DISORDER
     Dosage: UNK UKN, UNK

REACTIONS (2)
  - LEUKOPENIA [None]
  - BREAST CANCER [None]
